FAERS Safety Report 25826985 (Version 2)
Quarter: 2025Q3

REPORT INFORMATION
  Report Type: Report from Study
  Country: JP (occurrence: JP)
  Receive Date: 20250920
  Receipt Date: 20250923
  Transmission Date: 20251021
  Serious: Yes (Death, Hospitalization, Other)
  Sender: ABBVIE
  Company Number: JP-JNJFOC-20250906536

PATIENT

DRUGS (2)
  1. IMBRUVICA [Suspect]
     Active Substance: IBRUTINIB
     Indication: Chronic graft versus host disease
     Route: 048
  2. PREDNISOLONE [Concomitant]
     Active Substance: PREDNISOLONE
     Indication: Product used for unknown indication
     Route: 065

REACTIONS (22)
  - Renal failure [Fatal]
  - Infection [Unknown]
  - Viral infection [Unknown]
  - COVID-19 [Unknown]
  - Haemorrhage [Unknown]
  - Pneumonia bacterial [Fatal]
  - Thrombocytopenia [Unknown]
  - Hepatic function abnormal [Unknown]
  - Skin cancer [Fatal]
  - Diarrhoea [Unknown]
  - Bacteraemia [Unknown]
  - Mucosal inflammation [Unknown]
  - Cellulitis [Unknown]
  - Cytomegalovirus infection [Unknown]
  - Superior mesenteric artery syndrome [Unknown]
  - Renal abscess [Unknown]
  - Idiopathic pneumonia syndrome [Fatal]
  - Pneumonia fungal [Unknown]
  - Palpitations [Unknown]
  - Renal impairment [Unknown]
  - Obliterative bronchiolitis [Fatal]
  - Enteritis [Unknown]
